FAERS Safety Report 12824314 (Version 1)
Quarter: 2016Q4

REPORT INFORMATION
  Report Type: Report from Study
  Country: US (occurrence: US)
  Receive Date: 20161006
  Receipt Date: 20161006
  Transmission Date: 20170207
  Serious: No
  Sender: FDA-Public Use
  Company Number: US-AMGEN-USASL2016106639

PATIENT
  Age: 78 Year
  Sex: Female

DRUGS (1)
  1. PROLIA [Suspect]
     Active Substance: DENOSUMAB
     Indication: PRODUCT USED FOR UNKNOWN INDICATION
     Dosage: UNK
     Route: 065

REACTIONS (6)
  - Thyroid disorder [Unknown]
  - Dry skin [Unknown]
  - Pruritus [Recovering/Resolving]
  - Feeling cold [Not Recovered/Not Resolved]
  - Ear pruritus [Recovering/Resolving]
  - Alopecia [Recovering/Resolving]
